FAERS Safety Report 6609959-5 (Version None)
Quarter: 2010Q1

REPORT INFORMATION
  Report Type: 
  Country: None (occurrence: None)
  Receive Date: 20100224
  Receipt Date: 20100203
  Transmission Date: 20100710
  Serious: No
  Sender: FDA-Public Use
  Company Number: NXG-10-001

PATIENT
  Age: 51 Year
  Sex: Female

DRUGS (1)
  1. ASCOMP WITH CODEINE ( 50MG, 325MG, 40MG,30MG) NEXGEN [Suspect]
     Indication: TENSION HEADACHE

REACTIONS (3)
  - AGITATION [None]
  - FEELING JITTERY [None]
  - HEART RATE INCREASED [None]
